FAERS Safety Report 5660254-0 (Version None)
Quarter: 2008Q1

REPORT INFORMATION
  Report Type: 
  Country: None (occurrence: None)
  Receive Date: 20080306
  Receipt Date: 20080226
  Transmission Date: 20080703
  Serious: Yes (Other)
  Sender: FDA-Public Use
  Company Number: 2008-00689

PATIENT
  Age: 60 Year
  Sex: Male

DRUGS (5)
  1. VELCADE [Suspect]
     Indication: MULTIPLE MYELOMA
  2. KEPPRA [Concomitant]
  3. CLONAZEPAM [Concomitant]
  4. GARDENAL (PHENOBARBITAL) [Concomitant]
  5. ANTIEPILEPTICS [Concomitant]

REACTIONS (2)
  - DRUG INTERACTION [None]
  - PETIT MAL EPILEPSY [None]
